FAERS Safety Report 9176645 (Version 3)
Quarter: 2013Q3

REPORT INFORMATION
  Report Type: Report from Study
  Country: US (occurrence: US)
  Receive Date: 20130321
  Receipt Date: 20130701
  Transmission Date: 20140515
  Serious: Yes (Hospitalization)
  Sender: FDA-Public Use
  Company Number: US-JNJFOC-20130310161

PATIENT
  Age: 2 Year
  Sex: Male
  Weight: 13.9 kg

DRUGS (10)
  1. REMICADE [Suspect]
     Indication: CROHN^S DISEASE
     Route: 042
     Dates: start: 20111122, end: 20120403
  2. ZOVIRAX [Concomitant]
     Route: 065
  3. VITAMIN C [Concomitant]
     Route: 065
  4. VITAMIN D3 [Concomitant]
     Route: 065
  5. DIFLUCAN [Concomitant]
     Route: 065
  6. IMODIUM [Concomitant]
     Route: 065
  7. ZOFRAN [Concomitant]
     Route: 065
  8. MULTIVITAMINS [Concomitant]
     Route: 065
  9. PROBIOTICS [Concomitant]
     Route: 065
  10. NEORAL [Concomitant]
     Route: 065

REACTIONS (1)
  - Gastrointestinal infection [Recovered/Resolved]
